FAERS Safety Report 9567169 (Version 1)
Quarter: 2013Q3

REPORT INFORMATION
  Report Type: Spontaneous
  Country: US (occurrence: US)
  Receive Date: 20130930
  Receipt Date: 20130930
  Transmission Date: 20140515
  Serious: No
  Sender: FDA-Public Use
  Company Number: US-AMGEN-USASP2012061884

PATIENT
  Age: 37 Year
  Sex: Female
  Weight: 63.49 kg

DRUGS (8)
  1. ENBREL [Suspect]
     Indication: PRODUCT USED FOR UNKNOWN INDICATION
     Dosage: 50 MG, QWK
     Route: 058
  2. METHOTREXATE [Concomitant]
     Dosage: 2.5 MG, UNK
  3. NAPROSYN                           /00256201/ [Concomitant]
     Dosage: 500 MG, UNK
  4. PLAQUENIL                          /00072602/ [Concomitant]
     Dosage: 200 MG, UNK
  5. FLEXERIL                           /00428402/ [Concomitant]
     Dosage: 5 MG, UNK
  6. FOLIC ACID [Concomitant]
     Dosage: UNK
  7. CIPRO                              /00697201/ [Concomitant]
     Dosage: 500 MG, UNK
  8. ULTRAM [Concomitant]
     Dosage: 50 MG, UNK

REACTIONS (1)
  - Urinary tract infection [Unknown]
